FAERS Safety Report 12626270 (Version 2)
Quarter: 2016Q3

REPORT INFORMATION
  Report Type: Spontaneous
  Country: US (occurrence: US)
  Receive Date: 20160805
  Receipt Date: 20160923
  Transmission Date: 20161109
  Serious: Yes (Other)
  Sender: FDA-Public Use
  Company Number: US-AMGEN-USASP2015127589

PATIENT
  Age: 73 Year
  Sex: Female
  Weight: 70.3 kg

DRUGS (5)
  1. CRESTOR [Concomitant]
     Active Substance: ROSUVASTATIN CALCIUM
     Indication: BLOOD CHOLESTEROL INCREASED
  2. SYNTHROID [Concomitant]
     Active Substance: LEVOTHYROXINE SODIUM
  3. BONIVA [Concomitant]
     Active Substance: IBANDRONATE SODIUM
  4. PROLIA [Suspect]
     Active Substance: DENOSUMAB
     Indication: BONE DISORDER
     Dosage: 60 MG, UNK
     Route: 058
     Dates: start: 201503
  5. PROLIA [Suspect]
     Active Substance: DENOSUMAB
     Indication: OSTEOPOROSIS

REACTIONS (4)
  - Dyspnoea [Not Recovered/Not Resolved]
  - Bone disorder [Unknown]
  - Skin burning sensation [Unknown]
  - Back pain [Unknown]

NARRATIVE: CASE EVENT DATE: 201503
